FAERS Safety Report 7348902-0 (Version None)
Quarter: 2011Q1

REPORT INFORMATION
  Report Type: 
  Country: None (occurrence: None)
  Receive Date: 20110314
  Receipt Date: 20100920
  Transmission Date: 20110831
  Serious: Yes (Other)
  Sender: FDA-Public Use
  Company Number: US-BAYER-201013552NA

PATIENT
  Sex: Female
  Weight: 62 kg

DRUGS (9)
  1. PROVERA [Concomitant]
     Indication: AMENORRHOEA
     Dates: start: 20070901
  2. YAZ [Suspect]
     Indication: CONTRACEPTION
     Dates: start: 20070901, end: 20071201
  3. YAZ [Suspect]
     Indication: PREMENSTRUAL SYNDROME
  4. YAZ [Suspect]
     Indication: ACNE
  5. LEXAPRO [Concomitant]
  6. YASMIN [Suspect]
     Dates: start: 20070901, end: 20071201
  7. VICODIN [Concomitant]
  8. DILAUDID [Concomitant]
  9. OCELLA [Suspect]
     Dates: start: 20070901, end: 20071201

REACTIONS (6)
  - CHEST PAIN [None]
  - PREGNANCY ON ORAL CONTRACEPTIVE [None]
  - INCISION SITE PAIN [None]
  - DEEP VEIN THROMBOSIS [None]
  - ABORTION SPONTANEOUS [None]
  - VAGINAL HAEMORRHAGE [None]
